FAERS Safety Report 12997847 (Version 1)
Quarter: 2016Q4

REPORT INFORMATION
  Report Type: Spontaneous
  Country: US (occurrence: US)
  Receive Date: 20161205
  Receipt Date: 20161205
  Transmission Date: 20170207
  Serious: No
  Sender: FDA-Public Use
  Company Number: None

PATIENT

DRUGS (1)
  1. TRANSDERM SCOP [Suspect]
     Active Substance: SCOPOLAMINE
     Dosage: TRANSDERM SCOP SCOPOLAMINE TRANSDERMAL - DOSAGE FORM - PATCH - TYPE - MULTIPACK - SIZE - 10 PATCHES
     Route: 061

REACTIONS (1)
  - Product quality issue [None]
